FAERS Safety Report 20129394 (Version 5)
Quarter: 2024Q2

REPORT INFORMATION
  Report Type: Other
  Country: US (occurrence: None)
  Receive Date: 20211130
  Receipt Date: 20240607
  Transmission Date: 20240716
  Serious: Yes (Hospitalization, Other)
  Sender: FDA-Public Use
  Company Number: US-ROCHE-2646113

PATIENT
  Age: 50 Year
  Sex: Male
  Weight: 132.11 kg

DRUGS (20)
  1. OCREVUS [Suspect]
     Active Substance: OCRELIZUMAB
     Indication: Primary progressive multiple sclerosis
     Dosage: DATE OF TREATMENT: 25/SEP/2023?MOST RECENT DOSE: 10/APR/2024
     Route: 042
     Dates: start: 201911
  2. OCREVUS [Suspect]
     Active Substance: OCRELIZUMAB
     Route: 042
     Dates: start: 20230308, end: 20240308
  3. LYRICA [Suspect]
     Active Substance: PREGABALIN
     Indication: Neuralgia
     Route: 048
     Dates: start: 2017
  4. XARELTO [Concomitant]
     Active Substance: RIVAROXABAN
     Route: 048
     Dates: start: 2016
  5. VITAMIN D3 [Concomitant]
     Active Substance: CHOLECALCIFEROL
  6. PRILOSEC [Concomitant]
     Active Substance: OMEPRAZOLE MAGNESIUM
  7. LIORESAL [Concomitant]
     Active Substance: BACLOFEN
  8. OXCARBAZEPINE [Concomitant]
     Active Substance: OXCARBAZEPINE
     Indication: Neuralgia
  9. TRAMADOL [Concomitant]
     Active Substance: TRAMADOL\TRAMADOL HYDROCHLORIDE
     Indication: Pain
  10. ERGOCALCIFEROL [Concomitant]
     Active Substance: ERGOCALCIFEROL
     Indication: Multiple sclerosis
  11. NIACIN [Concomitant]
     Active Substance: NIACIN
  12. TRILEPTAL [Concomitant]
     Active Substance: OXCARBAZEPINE
  13. ATIVAN [Concomitant]
     Active Substance: LORAZEPAM
  14. LIDOCAINE [Concomitant]
     Active Substance: LIDOCAINE
  15. NIZORAL [Concomitant]
     Active Substance: KETOCONAZOLE
  16. DESOWEN [Concomitant]
     Active Substance: DESONIDE
  17. VALIUM [Concomitant]
     Active Substance: DIAZEPAM
     Route: 048
  18. GEMTESA [Concomitant]
     Active Substance: VIBEGRON
     Route: 048
  19. HYDROXYZINE [Concomitant]
     Active Substance: HYDROXYZINE HYDROCHLORIDE
     Indication: Anxiety
     Route: 048
     Dates: start: 2022
  20. NORTRIPTYLINE [Concomitant]
     Active Substance: NORTRIPTYLINE
     Indication: Neuralgia
     Route: 048

REACTIONS (12)
  - Multiple sclerosis [Not Recovered/Not Resolved]
  - Femur fracture [Recovered/Resolved]
  - Wrist fracture [Recovering/Resolving]
  - Relapsing multiple sclerosis [Unknown]
  - Joint range of motion decreased [Recovering/Resolving]
  - Memory impairment [Not Recovered/Not Resolved]
  - Fatigue [Not Recovered/Not Resolved]
  - Visual impairment [Recovered/Resolved]
  - Gait disturbance [Unknown]
  - Thermal burn [Recovered/Resolved]
  - Herpes zoster [Unknown]
  - Balance disorder [Unknown]

NARRATIVE: CASE EVENT DATE: 20210101
